FAERS Safety Report 8797109 (Version 1)
Quarter: 2012Q4

REPORT INFORMATION
  Report Type: Report from Study
  Country: DE (occurrence: DE)
  Receive Date: 20120919
  Receipt Date: 20120919
  Transmission Date: 20130627
  Serious: Yes (Hospitalization)
  Sender: FDA-Public Use
  Company Number: DE-GLAXOSMITHKLINE-B0831291A

PATIENT
  Age: 50 Year
  Sex: Female
  Weight: 81 kg

DRUGS (5)
  1. LAPATINIB [Suspect]
     Indication: BREAST CANCER
     Dosage: 750MG Per day
     Route: 048
     Dates: start: 20120820
  2. PACLITAXEL [Suspect]
     Indication: BREAST CANCER
     Dosage: 155MG Weekly
     Route: 042
     Dates: start: 20120813
  3. MYOCET [Suspect]
     Indication: BREAST CANCER
     Dosage: 39MG Weekly
     Route: 042
     Dates: start: 20120813
  4. TRASTUZUMAB [Suspect]
     Indication: BREAST CANCER
     Dosage: 648MG Every 3 weeks
     Route: 042
     Dates: start: 20120813
  5. UNSPECIFIED INGREDIENT [Suspect]
     Dosage: 30UNIT per day
     Route: 065
     Dates: start: 20120901, end: 20120902

REACTIONS (1)
  - Pyrexia [Not Recovered/Not Resolved]
